FAERS Safety Report 12196743 (Version 4)
Quarter: 2016Q3

REPORT INFORMATION
  Report Type: Report from Study
  Country: US (occurrence: US)
  Receive Date: 20160321
  Receipt Date: 20160708
  Transmission Date: 20161109
  Serious: Yes (Hospitalization)
  Sender: FDA-Public Use
  Company Number: US-ACTELION-A-NJ2016-133019

PATIENT
  Age: 43 Year
  Sex: Female

DRUGS (21)
  1. UPTRAVI [Suspect]
     Active Substance: SELEXIPAG
     Dosage: 1000 MCG, BID
     Route: 048
     Dates: start: 20160617
  2. ADCIRCA [Concomitant]
     Active Substance: TADALAFIL
  3. EMTRIVA [Concomitant]
     Active Substance: EMTRICITABINE
  4. ISENTRESS [Concomitant]
     Active Substance: RALTEGRAVIR POTASSIUM
  5. ADVAIR HFA [Concomitant]
     Active Substance: FLUTICASONE PROPIONATE\SALMETEROL XINAFOATE
  6. LETAIRIS [Suspect]
     Active Substance: AMBRISENTAN
     Dosage: 10 MG, QD
     Route: 065
     Dates: start: 20120503
  7. ONDANSETRON [Concomitant]
     Active Substance: ONDANSETRON
  8. PREZISTA [Concomitant]
     Active Substance: DARUNAVIR ETHANOLATE
  9. SPIRIVA [Concomitant]
     Active Substance: TIOTROPIUM BROMIDE MONOHYDRATE
  10. UPTRAVI [Suspect]
     Active Substance: SELEXIPAG
     Dosage: 1600 MCG, UNK
     Route: 048
  11. TYVASO [Concomitant]
     Active Substance: TREPROSTINIL
     Dosage: UNK
     Dates: end: 201602
  12. PREVACID [Concomitant]
     Active Substance: LANSOPRAZOLE
  13. VIREAD [Concomitant]
     Active Substance: TENOFOVIR DISOPROXIL FUMARATE
  14. ALDACTONE [Concomitant]
     Active Substance: SPIRONOLACTONE
  15. LETAIRIS [Suspect]
     Active Substance: AMBRISENTAN
     Indication: PULMONARY HYPERTENSION
     Dosage: 10 MG, QD
     Route: 065
     Dates: start: 20120505
  16. UPTRAVI [Suspect]
     Active Substance: SELEXIPAG
     Indication: PULMONARY ARTERIAL HYPERTENSION
     Dosage: 800 MCG, BID
     Route: 048
     Dates: start: 20160212
  17. UPTRAVI [Suspect]
     Active Substance: SELEXIPAG
     Dosage: 1200 MCG, BID
     Route: 048
     Dates: start: 20160211, end: 20160616
  18. COMPLERA [Concomitant]
     Active Substance: EMTRICITABINE\RILPIVIRINE HYDROCHLORIDE\TENOFOVIR DISOPROXIL FUMARATE
  19. NORVIR [Concomitant]
     Active Substance: RITONAVIR
  20. UPTRAVI [Suspect]
     Active Substance: SELEXIPAG
     Dosage: 1400 MCG, BID
     Route: 048
  21. FUROSEMIDE. [Concomitant]
     Active Substance: FUROSEMIDE

REACTIONS (6)
  - Pain in jaw [Unknown]
  - Nausea [Unknown]
  - Dyspnoea [Unknown]
  - Pneumonia [Unknown]
  - Headache [Unknown]
  - Flushing [Unknown]

NARRATIVE: CASE EVENT DATE: 20160308
